FAERS Safety Report 22194443 (Version 1)
Quarter: 2023Q2

REPORT INFORMATION
  Report Type: Spontaneous
  Country: FR (occurrence: None)
  Receive Date: 20230411
  Receipt Date: 20230411
  Transmission Date: 20230721
  Serious: Yes (Hospitalization)
  Sender: FDA-Public Use
  Company Number: None

PATIENT
  Age: 12 Year
  Sex: Male
  Weight: 29 kg

DRUGS (2)
  1. CELLCEPT [Suspect]
     Active Substance: MYCOPHENOLATE MOFETIL
     Indication: Nephrotic syndrome
     Dosage: 250 MG 2X/DAY
     Route: 065
     Dates: start: 202107, end: 20230202
  2. TACROLIMUS [Suspect]
     Active Substance: TACROLIMUS
     Indication: Nephrotic syndrome
     Dosage: 2 MG 2X/DAY
     Route: 065
     Dates: start: 20210607, end: 20230202

REACTIONS (1)
  - Crohn^s disease [Recovered/Resolved with Sequelae]

NARRATIVE: CASE EVENT DATE: 20221201
